FAERS Safety Report 5951025-6 (Version None)
Quarter: 2008Q4

REPORT INFORMATION
  Report Type: 
  Country: None (occurrence: None)
  Receive Date: 20081110
  Receipt Date: 20081028
  Transmission Date: 20090506
  Serious: Yes (Hospitalization, Other)
  Sender: FDA-Public Use
  Company Number: 2008-04053

PATIENT
  Sex: Male
  Weight: 88 kg

DRUGS (1)
  1. VELCADE [Suspect]
     Indication: MULTIPLE MYELOMA
     Dosage: 3.2 MG, INTRAVENOUS
     Route: 042
     Dates: start: 20080805, end: 20081010

REACTIONS (3)
  - DEEP VEIN THROMBOSIS [None]
  - DISEASE PROGRESSION [None]
  - INTESTINAL PERFORATION [None]
